FAERS Safety Report 10871579 (Version 1)
Quarter: 2015Q1

REPORT INFORMATION
  Report Type: Spontaneous
  Country: US (occurrence: None)
  Receive Date: 20150223
  Receipt Date: 20150223
  Transmission Date: 20150721
  Serious: Yes (Hospitalization)
  Sender: FDA-Public Use
  Company Number: None

PATIENT
  Age: 73 Year
  Sex: Male
  Weight: 85.73 kg

DRUGS (3)
  1. CABAZITAXEL [Suspect]
     Active Substance: CABAZITAXEL
     Indication: PROSTATE CANCER
     Dates: start: 20130910, end: 20131004
  2. IMRT [Suspect]
     Active Substance: RADIATION THERAPY
     Indication: PROSTATE CANCER
     Dosage: STANDARD OF CARE?
     Dates: start: 20130910, end: 20131101
  3. HORMONES [Suspect]
     Active Substance: UNSPECIFIED INGREDIENT

REACTIONS (3)
  - Gastroenteritis radiation [None]
  - Incontinence [None]
  - Rectal haemorrhage [None]

NARRATIVE: CASE EVENT DATE: 20131004
